FAERS Safety Report 4939846-X (Version None)
Quarter: 2006Q1

REPORT INFORMATION
  Report Type: 
  Country: None (occurrence: None)
  Receive Date: 20060310
  Receipt Date: 20050922
  Transmission Date: 20060701
  Serious: Yes (Hospitalization, Disabling)
  Sender: FDA-Public Use
  Company Number: US-MERCK-0509USA03392

PATIENT
  Age: 59 Year
  Sex: Male
  Weight: 113 kg

DRUGS (2)
  1. VIOXX [Suspect]
     Indication: ARTHRITIS
     Route: 048
     Dates: start: 20000405, end: 20020101
  2. VIOXX [Suspect]
     Route: 048
     Dates: start: 20020101, end: 20040930

REACTIONS (2)
  - ACUTE CORONARY SYNDROME [None]
  - CEREBROVASCULAR ACCIDENT [None]
